FAERS Safety Report 8429308-X (Version None)
Quarter: 2012Q2

REPORT INFORMATION
  Report Type: 
  Country: None (occurrence: None)
  Receive Date: 20120612
  Receipt Date: 20120607
  Transmission Date: 20120825
  Serious: Yes (Other)
  Sender: FDA-Public Use
  Company Number: PHHY2011US40423

PATIENT
  Sex: Male

DRUGS (7)
  1. AFINITOR [Suspect]
     Dosage: 5 MG, UNK
     Route: 048
  2. MAGIC MOUTHWASH [Concomitant]
     Dosage: UNK UKN, UNK
     Route: 065
  3. CARAFATE [Concomitant]
     Dosage: UNK UKN, UNK
     Route: 065
  4. AFINITOR [Suspect]
     Dosage: 2.5 MG, DAILY
     Route: 048
     Dates: end: 20111013
  5. LYSINE [Concomitant]
     Dosage: UNK UKN, UNK
     Route: 065
  6. VITAMIN TAB [Concomitant]
     Dosage: UNK UKN, UNK
     Route: 065
  7. AFINITOR [Suspect]
     Indication: TUBEROUS SCLEROSIS
     Dosage: 2.5 MG, DAILY
     Route: 048
     Dates: start: 20110311

REACTIONS (6)
  - MOUTH ULCERATION [None]
  - APHAGIA [None]
  - DIARRHOEA [None]
  - VARICELLA [None]
  - ORAL PAIN [None]
  - DEHYDRATION [None]
